FAERS Safety Report 19169941 (Version 1)
Quarter: 2021Q2

REPORT INFORMATION
  Report Type: Spontaneous
  Country: RU (occurrence: RU)
  Receive Date: 20210422
  Receipt Date: 20210422
  Transmission Date: 20210717
  Serious: Yes (Death, Other)
  Sender: FDA-Public Use
  Company Number: RU-ELI_LILLY_AND_COMPANY-RU202104006219

PATIENT
  Age: 56 Year
  Sex: Male

DRUGS (2)
  1. PACLITAXEL. [Concomitant]
     Active Substance: PACLITAXEL
     Indication: PRODUCT USED FOR UNKNOWN INDICATION
     Dosage: 80 MG/M2, CYCLICAL
     Route: 041
     Dates: start: 201611
  2. RAMUCIRUMAB [Suspect]
     Active Substance: RAMUCIRUMAB
     Indication: PRODUCT USED FOR UNKNOWN INDICATION
     Dosage: 8 MG/KG, CYCLICAL
     Route: 065
     Dates: start: 201611

REACTIONS (15)
  - Haematemesis [Unknown]
  - Death [Fatal]
  - Productive cough [Unknown]
  - General physical health deterioration [Unknown]
  - Neutropenia [Unknown]
  - Diarrhoea [Unknown]
  - Tumour haemorrhage [Unknown]
  - Anaemia [Unknown]
  - Diabetic gangrene [Unknown]
  - Pleurisy [Unknown]
  - Asthenia [Unknown]
  - Haemorrhage [Unknown]
  - Pyrexia [Unknown]
  - Loss of consciousness [Unknown]
  - Hepatic necrosis [Unknown]

NARRATIVE: CASE EVENT DATE: 201611
